FAERS Safety Report 7525205-2 (Version None)
Quarter: 2011Q2

REPORT INFORMATION
  Report Type: 
  Country: None (occurrence: None)
  Receive Date: 20110602
  Receipt Date: 20110602
  Transmission Date: 20111010
  Serious: Yes (Hospitalization)
  Sender: FDA-Public Use
  Company Number: None

PATIENT
  Sex: Female

DRUGS (11)
  1. PROVOCHOLINE [Suspect]
  2. PROVOCHOLINE [Suspect]
     Indication: BRONCHIAL HYPERREACTIVITY
     Dosage: UNKNOWN DOSE, INHALATION
     Route: 055
     Dates: start: 20110101
  3. HYDROCODONE BIT/HOMATROPINE [Concomitant]
  4. BENZONATATE [Concomitant]
  5. BUTALBITAL ACETAMINOPHEN AND CAFFEINE [Concomitant]
  6. NORETHINDRONE ACETATE [Concomitant]
  7. ETHINYL ESTRADIOL [Concomitant]
  8. DILTIAZEM [Concomitant]
  9. METHYLPREDNISOLONE [Concomitant]
  10. IPRATROPIUM BROMIDE [Concomitant]
  11. ATENOLOL [Concomitant]

REACTIONS (2)
  - PULMONARY FUNCTION CHALLENGE TEST ABNORMAL [None]
  - TACHYCARDIA [None]
